FAERS Safety Report 10381582 (Version 1)
Quarter: 2014Q1

REPORT INFORMATION
  Report Type: Spontaneous
  Country: US (occurrence: None)
  Receive Date: 20140306
  Receipt Date: 20140306
  Transmission Date: 20141002
  Serious: Yes (Other)
  Sender: FDA-Public Use
  Company Number: 163-21880-13105608

PATIENT
  Age: 59 Year
  Sex: Female

DRUGS (9)
  1. REVLIMID [Suspect]
     Indication: PLASMA CELL MYELOMA
     Route: 048
     Dates: start: 20131009, end: 20131022
  2. POTASSIUM CHLORIDE (POTASSIUM CHLORIDE) [Concomitant]
  3. SYNTHROID (LEVOTHYROXINE SODIUM) [Concomitant]
  4. LIPITOR (ATORVASTATIN) [Concomitant]
  5. VITAMIN D3 (COLECALCIFEROL) [Concomitant]
  6. PROTONIX [Concomitant]
  7. CYMBALTA [Concomitant]
  8. ONDANSETRON (ONDANSETRON) [Concomitant]
  9. LORAZEPAM (LORAZEPAM) [Concomitant]

REACTIONS (1)
  - Mouth ulceration [None]
